FAERS Safety Report 5693734-2 (Version None)
Quarter: 2008Q2

REPORT INFORMATION
  Report Type: 
  Country: None (occurrence: None)
  Receive Date: 20080403
  Receipt Date: 20080326
  Transmission Date: 20081010
  Serious: Yes (Death, Hospitalization)
  Sender: FDA-Public Use
  Company Number: NL-ROCHE-473015

PATIENT
  Age: 74 Year
  Sex: Male

DRUGS (10)
  1. CAPECITABINE [Suspect]
     Dosage: GIVEN TWICE DAILY FROM DAY ONE TO FOURTEEN OF EACH THREE-WEEK-CYCLE.
     Route: 048
     Dates: start: 20061107
  2. BEVACIZUMAB [Suspect]
     Dosage: GIVEN ON DAY ONE OF EACH THREE-WEEK-CYCLE.
     Route: 042
     Dates: start: 20061107
  3. OXALIPLATIN [Suspect]
     Dosage: GIVEN ON DAY ONE OF EACH THREE-WEEK-CYCLE.
     Route: 042
     Dates: start: 20061107
  4. CETUXIMAB [Suspect]
     Dosage: LOADING DOSE AS PER PROTOCOL. GIVEN ON DAY ONE OF THE FIRST THREE-WEEK-CYCLE.
     Route: 042
     Dates: start: 20061107
  5. CETUXIMAB [Suspect]
     Dosage: MAINTAINING DOSE AS PER PROTOCOL. GIVEN ON DAY ONE, EIGHT AND FIFTEEN OF EACH THREE-WEEK-CYCLE.
     Route: 042
     Dates: start: 20061114
  6. PANTOZOL [Concomitant]
  7. PRIMPERAN INJ [Concomitant]
  8. LOPERAMIDE HCL [Concomitant]
  9. DEXAMETHASONE TAB [Concomitant]
  10. UNSPECIFIED DRUG [Concomitant]
     Dosage: REPORTED AS DURIC.

REACTIONS (5)
  - CONDITION AGGRAVATED [None]
  - DIARRHOEA [None]
  - ILEUS [None]
  - METASTATIC NEOPLASM [None]
  - NAUSEA [None]
